FAERS Safety Report 6996662-5 (Version None)
Quarter: 2010Q3

REPORT INFORMATION
  Report Type: 
  Country: None (occurrence: None)
  Receive Date: 20100918
  Receipt Date: 20090720
  Transmission Date: 20110219
  Serious: No
  Sender: FDA-Public Use
  Company Number: US-WYE-H09914409

PATIENT
  Age: 66 Year
  Sex: Female
  Weight: 81.72 kg

DRUGS (3)
  1. ALAVERT [Suspect]
     Indication: HYPERSENSITIVITY
     Route: 048
     Dates: start: 20090301, end: 20090623
  2. GLUCOSAMINE [Concomitant]
  3. ASCORBIC ACID/ERGOCALCIFEROL/FOLIC ACID/NICOTINAMIDE/PANTHENOL/RETINOL [Concomitant]

REACTIONS (2)
  - CARPAL TUNNEL SYNDROME [None]
  - HYPOAESTHESIA [None]
